FAERS Safety Report 9736061 (Version 2)
Quarter: 2014Q1

REPORT INFORMATION
  Report Type: Spontaneous
  Country: US (occurrence: US)
  Receive Date: 20131206
  Receipt Date: 20140226
  Transmission Date: 20141002
  Serious: No
  Sender: FDA-Public Use
  Company Number: US-B.I. PHARMACEUTICALS,INC./RIDGEFIELD-2013-BI-38370BP

PATIENT
  Age: 77 Year
  Sex: Female

DRUGS (13)
  1. SPIRIVA [Suspect]
     Indication: CHRONIC OBSTRUCTIVE PULMONARY DISEASE
     Dosage: 18 MCG
     Route: 055
     Dates: start: 201302
  2. PROAIR [Concomitant]
     Route: 055
  3. BUPROPION [Concomitant]
     Route: 048
  4. NORTRIPTYLINE [Concomitant]
     Route: 048
  5. KEPPRA [Concomitant]
     Route: 048
  6. ADVAIR DISKUS [Concomitant]
     Route: 055
  7. DONEPEZIL [Concomitant]
     Route: 048
  8. ESCITALOPRAM [Concomitant]
     Route: 048
  9. NAMENDA [Concomitant]
     Route: 048
  10. ATROVENT [Concomitant]
     Dosage: FORMULATION: INHALATION AEROSOL
     Route: 055
  11. INSULIN [Concomitant]
     Dosage: STRENGTH: 25 UNITS; DAILY DOSE: 25 UNITS
     Route: 058
  12. VITAMIN D [Concomitant]
     Route: 048
  13. RED YEAST RICE [Concomitant]
     Route: 048

REACTIONS (4)
  - Mobility decreased [Not Recovered/Not Resolved]
  - Dyspnoea [Not Recovered/Not Resolved]
  - Product quality issue [Recovered/Resolved]
  - Product quality issue [Recovered/Resolved]
